FAERS Safety Report 21631159 (Version 1)
Quarter: 2022Q4

REPORT INFORMATION
  Report Type: Other
  Country: BE (occurrence: None)
  Receive Date: 20221123
  Receipt Date: 20221123
  Transmission Date: 20230113
  Serious: Yes (Other)
  Sender: FDA-Public Use
  Company Number: BE-AMGEN-BELSP2022190666

PATIENT
  Age: 46 Year
  Sex: Male

DRUGS (5)
  1. BEVACIZUMAB [Suspect]
     Active Substance: BEVACIZUMAB
     Indication: Retinopathy
     Route: 065
  2. OFLOXACIN [Concomitant]
     Active Substance: OFLOXACIN
     Indication: Retinopathy
  3. MYCOPHENOLATE MOFETIL [Concomitant]
     Active Substance: MYCOPHENOLATE MOFETIL
     Indication: Retinopathy
  4. DEXAMETHASONE [Concomitant]
     Active Substance: DEXAMETHASONE
     Indication: Retinopathy
  5. PREDNISONE [Concomitant]
     Active Substance: PREDNISONE
     Indication: Retinopathy

REACTIONS (2)
  - Off label use [Unknown]
  - Maculopathy [Not Recovered/Not Resolved]
